FAERS Safety Report 7982379-7 (Version None)
Quarter: 2011Q4

REPORT INFORMATION
  Report Type: 
  Country: None (occurrence: None)
  Receive Date: 20111215
  Receipt Date: 20111205
  Transmission Date: 20120403
  Serious: Yes (Hospitalization)
  Sender: FDA-Public Use
  Company Number: BE-ABBOTT-11P-013-0880479-00

PATIENT
  Age: 77 Year
  Sex: Male
  Weight: 67 kg

DRUGS (16)
  1. HUMIRA [Suspect]
     Indication: RHEUMATOID ARTHRITIS
     Dosage: BASELINE
     Route: 058
     Dates: start: 20110920, end: 20110920
  2. OXYBUTYNINE [Concomitant]
     Indication: URGE INCONTINENCE
     Dates: start: 20110401
  3. TRAMADOL HCL [Concomitant]
     Dates: start: 20110923, end: 20111101
  4. METHOTREXATE [Suspect]
     Indication: RHEUMATOID ARTHRITIS
     Route: 048
     Dates: start: 20110920
  5. VALTRAN [Concomitant]
     Indication: RHEUMATOID ARTHRITIS
     Dates: start: 20110811, end: 20110922
  6. HUMIRA [Suspect]
     Route: 058
     Dates: start: 20111004
  7. FOLIC ACID [Concomitant]
     Indication: VITAMIN SUPPLEMENTATION
     Dates: start: 20110922
  8. ZESTRIL [Concomitant]
     Indication: HYPERTENSION
     Dates: start: 20080101
  9. AMLODIPINE [Concomitant]
     Indication: HYPERTENSION
     Dates: start: 20060101
  10. PANTOPRAZOLE [Concomitant]
     Indication: PROPHYLAXIS AGAINST GASTROINTESTINAL ULCER
     Dates: start: 20100101
  11. OXYBUTYNINE [Concomitant]
  12. CALCIUM CARBONATE [Concomitant]
     Indication: OSTEOPOROSIS PROPHYLAXIS
     Dates: start: 20090101
  13. D-CURE [Concomitant]
     Indication: OSTEOPOROSIS PROPHYLAXIS
     Dates: start: 20090101
  14. MEDROL [Concomitant]
     Indication: RHEUMATOID ARTHRITIS
     Dates: start: 20110811
  15. TRAMADOL HCL [Concomitant]
     Indication: RHEUMATOID ARTHRITIS
     Dates: start: 20110811, end: 20110922
  16. FELDENE [Concomitant]
     Indication: RHEUMATOID ARTHRITIS
     Dates: start: 20110811, end: 20110922

REACTIONS (1)
  - CARDIAC DISORDER [None]
